FAERS Safety Report 8525720-9 (Version None)
Quarter: 2012Q3

REPORT INFORMATION
  Report Type: 
  Country: None (occurrence: None)
  Receive Date: 20120720
  Receipt Date: 20120709
  Transmission Date: 20120928
  Serious: Yes (Hospitalization, Disabling, Other)
  Sender: FDA-Public Use
  Company Number: US-009507513-1106USA02918

PATIENT

DRUGS (11)
  1. SIMVASTATIN [Concomitant]
     Indication: BLOOD CHOLESTEROL
     Dates: start: 19930823, end: 20071105
  2. SYNTHROID [Concomitant]
     Dosage: 0.1-0.125
     Route: 048
  3. ZOCOR [Concomitant]
     Dosage: 10-80
     Route: 048
  4. FOSAMAX [Suspect]
     Dosage: 10 MG, UNK
     Route: 048
     Dates: start: 20090210, end: 20090924
  5. ALENDRONATE SODIUM [Suspect]
     Indication: OSTEOPOROSIS
     Dosage: 70 MG, QW
     Route: 048
     Dates: start: 20080430, end: 20090527
  6. PREMARIN [Concomitant]
     Indication: HORMONE THERAPY
     Dosage: 0.625 MG, UNK
     Route: 067
     Dates: start: 20000223, end: 20080806
  7. FOSAMAX [Suspect]
     Dosage: 10 MG, UNK
     Route: 048
     Dates: start: 20090210, end: 20090924
  8. MK-0152 [Concomitant]
     Indication: HYPERTENSION
     Dosage: 25 MG, UNK
     Route: 048
     Dates: start: 20090406, end: 20110525
  9. FOSAMAX [Suspect]
     Indication: OSTEOPOROSIS
     Dosage: 70 MG, QW
     Route: 048
     Dates: start: 20020807, end: 20090527
  10. FOSAMAX [Suspect]
     Dosage: 70 MG, QW
     Route: 048
     Dates: start: 20020807, end: 20090527
  11. METICORTEN [Concomitant]
     Indication: PEMPHIGOID
     Dosage: 8 MG, QD
     Dates: start: 19900501

REACTIONS (68)
  - ACUTE PRERENAL FAILURE [None]
  - TOOTH DISORDER [None]
  - COLITIS [None]
  - ADRENAL SUPPRESSION [None]
  - RENAL FAILURE [None]
  - CAROTID ARTERY DISEASE [None]
  - SPONDYLOLISTHESIS [None]
  - INTERVERTEBRAL DISC DEGENERATION [None]
  - CEREBRAL ISCHAEMIA [None]
  - WHITE BLOOD CELL COUNT INCREASED [None]
  - IRRITABLE BOWEL SYNDROME [None]
  - SPINAL OSTEOARTHRITIS [None]
  - MUSCULOSKELETAL DISCOMFORT [None]
  - GINGIVAL BLEEDING [None]
  - CATARACT [None]
  - PALPITATIONS [None]
  - SLEEP DISORDER [None]
  - CHONDROCALCINOSIS [None]
  - FALL [None]
  - NAUSEA [None]
  - APHTHOUS STOMATITIS [None]
  - CHEST PAIN [None]
  - DYSPNOEA [None]
  - ORAL DISORDER [None]
  - WRIST FRACTURE [None]
  - BONE CYST [None]
  - URINARY INCONTINENCE [None]
  - LUNG NEOPLASM [None]
  - ANAEMIA [None]
  - SPINAL COMPRESSION FRACTURE [None]
  - GASTROOESOPHAGEAL REFLUX DISEASE [None]
  - URINARY TRACT INFECTION [None]
  - CYSTITIS [None]
  - OSTEONECROSIS OF JAW [None]
  - DYSPNOEA EXERTIONAL [None]
  - PERIODONTAL DISEASE [None]
  - DENTAL CARIES [None]
  - TEMPOROMANDIBULAR JOINT SYNDROME [None]
  - EMPHYSEMA [None]
  - ESCHERICHIA TEST POSITIVE [None]
  - FRACTURED SACRUM [None]
  - DECREASED APPETITE [None]
  - GINGIVAL DISORDER [None]
  - RESTLESS LEGS SYNDROME [None]
  - MUSCULOSKELETAL DISORDER [None]
  - CARDIAC MURMUR [None]
  - LABORATORY TEST ABNORMAL [None]
  - IMPACTED FRACTURE [None]
  - ANXIETY [None]
  - SUPRAVENTRICULAR EXTRASYSTOLES [None]
  - OSTEOARTHRITIS [None]
  - SEPSIS [None]
  - ESCHERICHIA INFECTION [None]
  - ROTATOR CUFF SYNDROME [None]
  - SCOLIOSIS [None]
  - LEFT VENTRICULAR HYPERTROPHY [None]
  - HAEMATOMA [None]
  - SYNCOPE [None]
  - HYPOKALAEMIA [None]
  - HERPES ZOSTER [None]
  - SINUS TACHYCARDIA [None]
  - DIARRHOEA [None]
  - HYPERHIDROSIS [None]
  - CARDIAC DISORDER [None]
  - PUBIS FRACTURE [None]
  - BLADDER PROLAPSE [None]
  - CEREBRAL DISORDER [None]
  - DEHYDRATION [None]
